FAERS Safety Report 7116278-X (Version None)
Quarter: 2010Q4

REPORT INFORMATION
  Report Type: 
  Country: None (occurrence: None)
  Receive Date: 20101122
  Receipt Date: 20101112
  Transmission Date: 20110411
  Serious: Yes (Hospitalization)
  Sender: FDA-Public Use
  Company Number: CA-JNJFOC-20101104967

PATIENT
  Sex: Male

DRUGS (6)
  1. REMICADE [Suspect]
     Indication: CROHN'S DISEASE
     Route: 042
  2. REMICADE [Suspect]
     Route: 042
  3. VITAMIN B-12 [Concomitant]
  4. PENTASA [Concomitant]
  5. IMOVANE [Concomitant]
  6. CELEXA [Concomitant]

REACTIONS (1)
  - INTESTINAL RESECTION [None]
